FAERS Safety Report 21284022 (Version 1)
Quarter: 2022Q3

REPORT INFORMATION
  Report Type: Spontaneous
  Country: US (occurrence: US)
  Receive Date: 20220901
  Receipt Date: 20220901
  Transmission Date: 20221027
  Serious: Yes (Other)
  Sender: FDA-Public Use
  Company Number: US-JNJFOC-20220845201

PATIENT
  Age: 19 Year
  Sex: Male

DRUGS (3)
  1. INVEGA SUSTENNA [Suspect]
     Active Substance: PALIPERIDONE PALMITATE
     Indication: Product used for unknown indication
     Route: 030
     Dates: start: 202208
  2. INVEGA SUSTENNA [Suspect]
     Active Substance: PALIPERIDONE PALMITATE
  3. INVEGA SUSTENNA [Suspect]
     Active Substance: PALIPERIDONE PALMITATE

REACTIONS (11)
  - Choking [Unknown]
  - Tardive dyskinesia [Unknown]
  - Nausea [Unknown]
  - Increased appetite [Unknown]
  - Pallor [Unknown]
  - Movement disorder [Unknown]
  - Anorgasmia [Unknown]
  - Insomnia [Unknown]
  - Dizziness [Unknown]
  - Tremor [Unknown]
  - Hyperphagia [Unknown]

NARRATIVE: CASE EVENT DATE: 20220821
